FAERS Safety Report 9252334 (Version 2)
Quarter: 2013Q2

REPORT INFORMATION
  Report Type: Spontaneous
  Country: SE (occurrence: SE)
  Receive Date: 20130424
  Receipt Date: 20130506
  Transmission Date: 20140414
  Serious: No
  Sender: FDA-Public Use
  Company Number: SE-AMGEN-SWESP2013027232

PATIENT
  Age: 82 Year
  Sex: Male

DRUGS (1)
  1. ARANESP [Suspect]
     Indication: HAEMOGLOBIN DECREASED
     Dosage: 150 MUG, UNK
     Dates: start: 20120901

REACTIONS (2)
  - Contusion [Recovered/Resolved]
  - Skin discolouration [Not Recovered/Not Resolved]
